FAERS Safety Report 23471072 (Version 2)
Quarter: 2024Q1

REPORT INFORMATION
  Report Type: Spontaneous
  Country: US (occurrence: US)
  Receive Date: 20240202
  Receipt Date: 20240215
  Transmission Date: 20240409
  Serious: Yes (Other)
  Sender: FDA-Public Use
  Company Number: US-PFIZER INC-PV202300000468

PATIENT
  Age: 76 Year
  Sex: Female
  Weight: 40.37 kg

DRUGS (4)
  1. VYNDAMAX [Suspect]
     Active Substance: TAFAMIDIS
     Indication: Amyloidosis
     Dosage: 61 MG, 1X/DAY
  2. VYNDAMAX [Suspect]
     Active Substance: TAFAMIDIS
     Indication: Acquired ATTR amyloidosis
  3. TORSEMIDE [Concomitant]
     Active Substance: TORSEMIDE
     Indication: Peripheral swelling
     Dosage: 20 MG
  4. METOPROLOL [Concomitant]
     Active Substance: METOPROLOL
     Dosage: UNK

REACTIONS (2)
  - Spinal fracture [Recovering/Resolving]
  - Pain [Unknown]
